FAERS Safety Report 17399903 (Version 1)
Quarter: 2020Q1

REPORT INFORMATION
  Report Type: Spontaneous
  Country: GB (occurrence: GB)
  Receive Date: 20200211
  Receipt Date: 20200211
  Transmission Date: 20200409
  Serious: Yes (Hospitalization)
  Sender: FDA-Public Use
  Company Number: GB-TEVA-2020-GB-1184081

PATIENT
  Age: 62 Year
  Sex: Female

DRUGS (12)
  1. METFORMIN [Concomitant]
     Active Substance: METFORMIN HYDROCHLORIDE
  2. LIRAGLUTIDE [Concomitant]
     Active Substance: LIRAGLUTIDE
  3. TILDIEM [Concomitant]
     Active Substance: DILTIAZEM HYDROCHLORIDE
  4. HUMULIN L [Concomitant]
     Active Substance: INSULIN HUMAN
  5. DIGOXIN. [Concomitant]
     Active Substance: DIGOXIN
  6. ALOGLIPTIN. [Concomitant]
     Active Substance: ALOGLIPTIN
  7. CYANOCOBALAMIN. [Concomitant]
     Active Substance: CYANOCOBALAMIN
  8. APIXABAN [Concomitant]
     Active Substance: APIXABAN
  9. GABAPENTIN. [Suspect]
     Active Substance: GABAPENTIN
     Dosage: 1600MG
     Route: 048
     Dates: end: 20190807
  10. GLICLAZIDE [Concomitant]
     Active Substance: GLICLAZIDE
  11. PRAVASTATIN SODIUM. [Concomitant]
     Active Substance: PRAVASTATIN SODIUM
  12. PROPRANOLOL HYDROCHLORIDE. [Concomitant]
     Active Substance: PROPRANOLOL HYDROCHLORIDE

REACTIONS (6)
  - Metabolic acidosis [Recovered/Resolved]
  - Cardiac arrest [Recovered/Resolved]
  - Acute kidney injury [Recovered/Resolved]
  - Bradycardia [Recovered/Resolved]
  - Cellulitis [Unknown]
  - Hyperkalaemia [Recovered/Resolved]
